FAERS Safety Report 24235786 (Version 1)
Quarter: 2024Q3

REPORT INFORMATION
  Report Type: Spontaneous
  Country: US (occurrence: US)
  Receive Date: 20240822
  Receipt Date: 20240822
  Transmission Date: 20241017
  Serious: Yes (Hospitalization)
  Sender: Day One Biopharmaceuticals
  Company Number: US-DAY ONE BIOPHARMACEUTICALS, INC.-2024US000439

PATIENT
  Age: 4 Year
  Sex: Male
  Weight: 20.1 kg

DRUGS (9)
  1. OJEMDA [Suspect]
     Active Substance: TOVORAFENIB
     Indication: Astrocytoma, low grade
     Dosage: 325 MG, 1/WEEK
     Route: 048
     Dates: start: 20240610
  2. ACETAMINOPHEN [Concomitant]
     Active Substance: ACETAMINOPHEN
     Indication: Pain
     Dosage: 162.5 MG, Q4HR
     Route: 048
     Dates: start: 20231120
  3. LIDOCAINE\PRILOCAINE [Concomitant]
     Active Substance: LIDOCAINE\PRILOCAINE
     Indication: Procedural pain
     Dosage: UNK, 1 STRIP PRN
     Route: 061
     Dates: start: 20231120
  4. ONDANSETRON [Concomitant]
     Active Substance: ONDANSETRON
     Indication: Nausea
     Dosage: 2 MG, PRN Q8HR
     Route: 048
     Dates: start: 20231218
  5. ONDANSETRON [Concomitant]
     Active Substance: ONDANSETRON
     Indication: Vomiting
  6. CYPROHEPTADINE [Concomitant]
     Active Substance: CYPROHEPTADINE\CYPROHEPTADINE HYDROCHLORIDE
     Indication: Appetite disorder
     Dosage: 4 MG, TID
     Route: 048
     Dates: start: 20231218
  7. VITAMINS [Concomitant]
     Active Substance: VITAMINS
     Indication: Supplementation therapy
     Dosage: 1 TABLET, QD
     Route: 048
     Dates: start: 20231120
  8. MELATONIN [Concomitant]
     Active Substance: MELATONIN
     Indication: Insomnia
     Dosage: 1 MG, PRN NIGHTLY
     Route: 048
     Dates: start: 20231120
  9. TRIAMCINOLONE [Concomitant]
     Active Substance: TRIAMCINOLONE
     Indication: Rash
     Dosage: UNK, PRN TID
     Route: 061
     Dates: start: 20231120

REACTIONS (2)
  - Vomiting [Recovered/Resolved]
  - Headache [Recovered/Resolved]

NARRATIVE: CASE EVENT DATE: 20240630
